FAERS Safety Report 5425080-6 (Version None)
Quarter: 2007Q3

REPORT INFORMATION
  Report Type: 
  Country: None (occurrence: None)
  Receive Date: 20070824
  Receipt Date: 20070820
  Transmission Date: 20080115
  Serious: Yes (Life-Threatening)
  Sender: FDA-Public Use
  Company Number: BE-ASTRAZENECA-2007AC00049

PATIENT
  Age: 17 Year
  Sex: Female

DRUGS (1)
  1. SEROQUEL [Suspect]
     Dosage: 80 TABLETS
     Route: 048

REACTIONS (7)
  - CONVULSION [None]
  - GLASGOW COMA SCALE ABNORMAL [None]
  - HYPOTENSION [None]
  - HYPOTONY OF EYE [None]
  - INTENTIONAL OVERDOSE [None]
  - MYDRIASIS [None]
  - SINUS TACHYCARDIA [None]
